FAERS Safety Report 4413312-2 (Version None)
Quarter: 2004Q3

REPORT INFORMATION
  Report Type: 
  Country: None (occurrence: None)
  Receive Date: 20040802
  Receipt Date: 20040729
  Transmission Date: 20050211
  Serious: Yes (Hospitalization)
  Sender: FDA-Public Use
  Company Number: PHRM2004FR02473

PATIENT
  Age: 21 Year
  Sex: Male
  Weight: 60 kg

DRUGS (1)
  1. NITRIDERM TTS [Suspect]
     Dosage: 2 DF, QD
     Route: 062
     Dates: start: 20040605, end: 20040605

REACTIONS (3)
  - HYPOACUSIS [None]
  - MEDICATION ERROR [None]
  - TINNITUS [None]
